FAERS Safety Report 23382636 (Version 2)
Quarter: 2024Q1

REPORT INFORMATION
  Report Type: Spontaneous
  Country: ES (occurrence: ES)
  Receive Date: 20240109
  Receipt Date: 20240125
  Transmission Date: 20240409
  Serious: Yes (Other)
  Sender: FDA-Public Use
  Company Number: None

PATIENT
  Age: 63 Year
  Sex: Female

DRUGS (8)
  1. LEVETIRACETAM [Suspect]
     Active Substance: LEVETIRACETAM
     Dosage: 500 MG, 2X/DAY
     Dates: start: 20230803, end: 20230810
  2. ERYTHROMYCIN [Suspect]
     Active Substance: ERYTHROMYCIN
     Dosage: 1 G, 3X/DAY
     Route: 042
     Dates: start: 20230805, end: 20230807
  3. METAMIZOLE [Suspect]
     Active Substance: METAMIZOLE
     Dosage: 2 G, 4X/DAY
     Dates: start: 20230803, end: 20230811
  4. MORPHINE [Suspect]
     Active Substance: MORPHINE
     Dosage: UNK
     Dates: start: 20230803, end: 20230811
  5. ACETAMINOPHEN [Suspect]
     Active Substance: ACETAMINOPHEN
     Dosage: 1 G, 4X/DAY
     Dates: start: 20230803, end: 20230811
  6. NIMODIPINE [Suspect]
     Active Substance: NIMODIPINE
     Dosage: UNK
     Dates: start: 20230803, end: 20230811
  7. SIMVASTATIN [Suspect]
     Active Substance: SIMVASTATIN
     Indication: Hyperlipidaemia
     Dosage: 40 MG, 1X/DAY
     Route: 048
     Dates: start: 2022, end: 20230811
  8. OMEPRAZOLE [Suspect]
     Active Substance: OMEPRAZOLE
     Dosage: UNK
     Dates: start: 20230803, end: 20230808

REACTIONS (2)
  - Cholestasis [Recovered/Resolved]
  - Hypertransaminasaemia [Recovered/Resolved]

NARRATIVE: CASE EVENT DATE: 20230807
